FAERS Safety Report 13736375 (Version 1)
Quarter: 2017Q3

REPORT INFORMATION
  Report Type: Spontaneous
  Country: US (occurrence: US)
  Receive Date: 20170710
  Receipt Date: 20170710
  Transmission Date: 20171127
  Serious: No
  Sender: FDA-Public Use
  Company Number: US-PFIZER INC-2017296093

PATIENT
  Sex: Female

DRUGS (2)
  1. ADVIL PM [Suspect]
     Active Substance: DIPHENHYDRAMINE CITRATE\IBUPROFEN
     Dosage: 1 DF, UNK
  2. ADVIL [Suspect]
     Active Substance: IBUPROFEN
     Dosage: 1 DF, UNK

REACTIONS (2)
  - Underdose [Unknown]
  - Insomnia [Unknown]
